FAERS Safety Report 8367503-9 (Version None)
Quarter: 2012Q2

REPORT INFORMATION
  Report Type: 
  Country: None (occurrence: None)
  Receive Date: 20120517
  Receipt Date: 20120403
  Transmission Date: 20120825
  Serious: No
  Sender: FDA-Public Use
  Company Number: US-GLAXOSMITHKLINE-A0972735A

PATIENT
  Sex: Male

DRUGS (2)
  1. VOTRIENT [Suspect]
     Indication: PRODUCT USED FOR UNKNOWN INDICATION
     Dosage: 600MG PER DAY
     Route: 065
     Dates: start: 20120314
  2. CARDIZEM [Concomitant]

REACTIONS (3)
  - CHROMATURIA [None]
  - BLOOD PRESSURE ABNORMAL [None]
  - PROTEINURIA [None]
